FAERS Safety Report 25682413 (Version 1)
Quarter: 2025Q3

REPORT INFORMATION
  Report Type: Spontaneous
  Country: US (occurrence: US)
  Receive Date: 20250814
  Receipt Date: 20250814
  Transmission Date: 20251021
  Serious: No
  Sender: ELI LILLY AND COMPANY
  Company Number: US-ELI_LILLY_AND_COMPANY-US202508011456

PATIENT

DRUGS (2)
  1. OMVOH [Suspect]
     Active Substance: MIRIKIZUMAB-MRKZ
     Indication: Colitis ulcerative
     Route: 065
  2. OMVOH [Suspect]
     Active Substance: MIRIKIZUMAB-MRKZ
     Indication: Crohn^s disease

REACTIONS (1)
  - Headache [Unknown]

NARRATIVE: CASE EVENT DATE: 20250808
